FAERS Safety Report 18761485 (Version 1)
Quarter: 2021Q1

REPORT INFORMATION
  Report Type: Report from Study
  Country: None (occurrence: JP)
  Receive Date: 20210120
  Receipt Date: 20210120
  Transmission Date: 20210419
  Serious: Yes (Hospitalization)
  Sender: FDA-Public Use
  Company Number: JP-ABBVIE-21K-087-3736273-00

PATIENT
  Age: 58 Year
  Sex: Male
  Weight: 63 kg

DRUGS (16)
  1. DUODOPA [Suspect]
     Active Substance: CARBIDOPA\LEVODOPA
     Indication: PARKINSON^S DISEASE
     Dosage: MD: 9.2 ML??CD: 1.6 ML/HR X 14 HRS
     Route: 050
     Dates: start: 20181025, end: 20181106
  2. ALLOPURINOL. [Concomitant]
     Active Substance: ALLOPURINOL
     Indication: PRODUCT USED FOR UNKNOWN INDICATION
     Route: 048
  3. AMANTADINE HYDROCHLORIDE. [Concomitant]
     Active Substance: AMANTADINE HYDROCHLORIDE
     Route: 048
     Dates: start: 20181116
  4. DUODOPA [Suspect]
     Active Substance: CARBIDOPA\LEVODOPA
     Dosage: MD: 6.2 ML??CD: 2.6 ML/HR X 16 HRS??ED: 1.5 ML/UNIT X 1
     Route: 050
     Dates: start: 20190110, end: 20200219
  5. ZONISAMIDE. [Concomitant]
     Active Substance: ZONISAMIDE
     Indication: PARKINSON^S DISEASE
     Route: 048
  6. MAGNESIUM OXIDE. [Concomitant]
     Active Substance: MAGNESIUM OXIDE
     Indication: PRODUCT USED FOR UNKNOWN INDICATION
     Route: 048
  7. DUODOPA [Suspect]
     Active Substance: CARBIDOPA\LEVODOPA
     Dosage: MD: 6.2 ML??CD: 2.4 ML/HR X 16 HRS??ED: 1.5 ML/UNIT X 1
     Route: 050
     Dates: start: 20181204, end: 20190110
  8. DUODOPA [Suspect]
     Active Substance: CARBIDOPA\LEVODOPA
     Dosage: MD: 6.2 ML??CD: 2.8 ML/HR X 16 HRS??ED: 1.5 ML/UNIT X 1
     Route: 050
     Dates: start: 20200219, end: 20200601
  9. DUODOPA [Suspect]
     Active Substance: CARBIDOPA\LEVODOPA
     Dosage: MD: 9.2 ML??CD: 1.6 ML/HR X 15 HRS
     Route: 050
     Dates: start: 20181108, end: 20181113
  10. PRAMIPEXOLE HYDROCHLORIDE [Concomitant]
     Active Substance: PRAMIPEXOLE DIHYDROCHLORIDE
     Indication: PARKINSON^S DISEASE
     Route: 048
  11. DUODOPA [Suspect]
     Active Substance: CARBIDOPA\LEVODOPA
     Dosage: MD: 9.2 ML??CD: 1.5 ML/HR X 15 HRS
     Route: 050
     Dates: start: 20181106, end: 20181108
  12. DUODOPA [Suspect]
     Active Substance: CARBIDOPA\LEVODOPA
     Dosage: MD: 9.2 ML??CD: 1.7 ML/HR X 15 HRS
     Route: 050
     Dates: start: 20181113, end: 20181126
  13. AMANTADINE HYDROCHLORIDE. [Concomitant]
     Active Substance: AMANTADINE HYDROCHLORIDE
     Indication: PARKINSON^S DISEASE
     Route: 048
     Dates: start: 20181109, end: 20181115
  14. DUODOPA [Suspect]
     Active Substance: CARBIDOPA\LEVODOPA
     Dosage: MD: 9.2 ML??CD: 2.2 ML/HR X 15 HRS??ED: 1.5 ML/UNIT X 1
     Route: 050
     Dates: start: 20181126, end: 20181204
  15. DUODOPA [Suspect]
     Active Substance: CARBIDOPA\LEVODOPA
     Dosage: MD: 6.2 ML??CD: 2.7 ML/HR X 16 HRS??ED: 1.5 ML/UNIT X 1
     Route: 050
     Dates: start: 20200601
  16. ENTACAPONE. [Concomitant]
     Active Substance: ENTACAPONE
     Indication: PARKINSON^S DISEASE
     Route: 048
     Dates: start: 20201021

REACTIONS (1)
  - Appendicitis [Recovered/Resolved]

NARRATIVE: CASE EVENT DATE: 20200803
